FAERS Safety Report 25274369 (Version 1)
Quarter: 2025Q2

REPORT INFORMATION
  Report Type: Spontaneous
  Country: US (occurrence: US)
  Receive Date: 20250506
  Receipt Date: 20250506
  Transmission Date: 20250716
  Serious: Yes (Hospitalization, Other)
  Sender: COOPERSURGICAL
  Company Number: US-COOPERSURGICAL, INC.-2025CPS003332

PATIENT
  Age: 38 Year
  Sex: Female
  Weight: 52.154 kg

DRUGS (1)
  1. PARAGARD T 380A [Suspect]
     Active Substance: COPPER
     Indication: Contraception
     Route: 015
     Dates: start: 20140715, end: 20230728

REACTIONS (9)
  - Injury associated with device [Unknown]
  - Tubo-ovarian abscess [Unknown]
  - Salpingectomy [Unknown]
  - Septic shock [Unknown]
  - Pelvic infection [Unknown]
  - Abdominal pain [Unknown]
  - Pelvic floor muscle weakness [Unknown]
  - Muscular weakness [Unknown]
  - Hypoaesthesia [Unknown]

NARRATIVE: CASE EVENT DATE: 20230801
